FAERS Safety Report 11480392 (Version 1)
Quarter: 2015Q3

REPORT INFORMATION
  Report Type: Spontaneous
  Country: US (occurrence: US)
  Receive Date: 20150909
  Receipt Date: 20150909
  Transmission Date: 20151125
  Serious: No
  Sender: FDA-Public Use
  Company Number: US-ASTRAZENECA-2015SE83088

PATIENT
  Sex: Female

DRUGS (1)
  1. FARXIGA [Suspect]
     Active Substance: DAPAGLIFLOZIN PROPANEDIOL
     Dosage: DAILY
     Route: 048
     Dates: start: 201508, end: 201508

REACTIONS (1)
  - Pruritus generalised [Recovered/Resolved]
